FAERS Safety Report 8235635-1 (Version None)
Quarter: 2012Q1

REPORT INFORMATION
  Report Type: 
  Country: None (occurrence: None)
  Receive Date: 20120323
  Receipt Date: 20120307
  Transmission Date: 20120608
  Serious: Yes (Other)
  Sender: FDA-Public Use
  Company Number: 1202-084

PATIENT
  Age: 76 Year
  Sex: Male

DRUGS (4)
  1. VITAMINS (VITAMINS NOS) [Concomitant]
  2. EYLEA [Suspect]
     Indication: CHOROIDAL NEOVASCULARISATION
     Dosage: 2 MG, 1 IN 1 M, INTRAVITREAL
     Dates: start: 20120103, end: 20120103
  3. BASA [Concomitant]
  4. FISH OILS (FISH OIL) [Concomitant]

REACTIONS (3)
  - VISUAL ACUITY REDUCED [None]
  - CHOROIDAL NEOVASCULARISATION [None]
  - DISEASE RECURRENCE [None]
